FAERS Safety Report 7715257-9 (Version None)
Quarter: 2011Q3

REPORT INFORMATION
  Report Type: 
  Country: None (occurrence: None)
  Receive Date: 20110829
  Receipt Date: 20110825
  Transmission Date: 20111222
  Serious: Yes (Death)
  Sender: FDA-Public Use
  Company Number: PHHY2011BR76294

PATIENT
  Sex: Male

DRUGS (18)
  1. BETACAROTENE [Concomitant]
     Dosage: UNK UKN, UNK
  2. RISPERIDONE [Concomitant]
     Dosage: 1 DF, QHS
     Route: 048
  3. SOCOTERROL [Concomitant]
     Dosage: UNK UKN, UNK
  4. EXELON [Suspect]
     Indication: DEMENTIA ALZHEIMER'S TYPE
     Dosage: 3 MG, BID
     Route: 048
  5. COPPER [Concomitant]
     Dosage: UNK UKN, UNK
  6. NIMODIPINE [Concomitant]
     Indication: DEMENTIA ALZHEIMER'S TYPE
     Dosage: UNK UKN, UNK
  7. MEMANTINE HYDROCHLORIDE [Concomitant]
     Indication: DEMENTIA ALZHEIMER'S TYPE
     Dosage: 1 DF, BID
     Route: 048
  8. VITAMIN TAB [Concomitant]
     Dosage: UNK UKN, UNK
  9. PIRACETAM [Concomitant]
     Dosage: UNK UKN, UNK
  10. EXELON [Suspect]
     Dosage: 9 MG PATCH EVRY 24 HOURS
     Route: 062
  11. CHLORDIAZEPOXIDE [Concomitant]
     Dosage: 1 DF, QHS
  12. ARGININE ASPARTATE [Concomitant]
     Dosage: UNK UKN, UNK
  13. SELENIUM [Concomitant]
     Dosage: UNK UKN, UNK
  14. ASCORBIC ACID [Concomitant]
     Dosage: UNK UKN, UNK
  15. LYCOPENE [Concomitant]
     Dosage: UNK UKN, UNK
  16. CITALOPRAM [Concomitant]
     Dosage: 20 MG, QHS
     Route: 048
  17. ZINC OXIDE [Concomitant]
     Dosage: UNK UKN, UNK
  18. CLONAZEPAM [Concomitant]
     Route: 048

REACTIONS (2)
  - INFARCTION [None]
  - FOOD AVERSION [None]
